FAERS Safety Report 4422963-0 (Version None)
Quarter: 2004Q3

REPORT INFORMATION
  Report Type: 
  Country: None (occurrence: None)
  Receive Date: 20040809
  Receipt Date: 20040809
  Transmission Date: 20050211
  Serious: No
  Sender: FDA-Public Use
  Company Number: None

PATIENT
  Age: 48 Year
  Sex: Male

DRUGS (3)
  1. IBUPROFEN [Suspect]
     Indication: HEADACHE
     Dosage: 600 MG DAILY
  2. IBUPROFEN [Suspect]
     Indication: PROPHYLAXIS
     Dosage: 600 MG DAILY
  3. PEPTO BISMOL [Suspect]
     Dosage: 1 BOTTLE

REACTIONS (5)
  - ALCOHOL USE [None]
  - ASTHENIA [None]
  - DYSPNOEA [None]
  - FAECES DISCOLOURED [None]
  - GASTRIC ULCER [None]
